FAERS Safety Report 9353049 (Version 1)
Quarter: 2013Q2

REPORT INFORMATION
  Report Type: Spontaneous
  Country: US (occurrence: US)
  Receive Date: 20130618
  Receipt Date: 20130618
  Transmission Date: 20140414
  Serious: Yes (Other)
  Sender: FDA-Public Use
  Company Number: US-JNJFOC-20130602607

PATIENT
  Age: 15 Year
  Sex: Male
  Weight: 56.25 kg

DRUGS (5)
  1. METHYLPHENIDATE HCL (WATSON) [Suspect]
     Indication: ATTENTION DEFICIT/HYPERACTIVITY DISORDER
     Dosage: WHITE- ALZA 36 MG
     Route: 048
     Dates: start: 20130509
  2. METHYLPHENIDATE HCL (WATSON) [Suspect]
     Indication: ATTENTION DEFICIT/HYPERACTIVITY DISORDER
     Dosage: BROWN/ ORANGE- ALZA 54 MG
     Route: 048
     Dates: start: 20130520
  3. METHYLPHENIDATE HCL (WATSON) [Suspect]
     Indication: ATTENTION DEFICIT/HYPERACTIVITY DISORDER
     Dosage: BROWN/ ORANGE- ALZA 54 MG IN THE MORNING
     Route: 048
     Dates: start: 2005, end: 20130519
  4. METHYLPHENIDATE HCL (WATSON) [Suspect]
     Indication: ATTENTION DEFICIT/HYPERACTIVITY DISORDER
     Dosage: WHITE- ALZA 36 MG IN THE MORNING
     Route: 048
     Dates: start: 2005, end: 20130508
  5. CETRIZINE [Concomitant]
     Indication: MULTIPLE ALLERGIES
     Dosage: EVERY MORNING
     Route: 048
     Dates: start: 201112

REACTIONS (5)
  - Syncope [Recovered/Resolved]
  - Heat exhaustion [Recovered/Resolved]
  - Weight decreased [Not Recovered/Not Resolved]
  - Drug screen negative [Not Recovered/Not Resolved]
  - Incorrect dose administered [Unknown]
